FAERS Safety Report 16941381 (Version 2)
Quarter: 2019Q4

REPORT INFORMATION
  Report Type: Spontaneous
  Country: US (occurrence: US)
  Receive Date: 20191021
  Receipt Date: 20191120
  Transmission Date: 20200122
  Serious: No
  Sender: FDA-Public Use
  Company Number: US-JNJFOC-20191014551

PATIENT
  Age: 30 Year
  Sex: Male
  Weight: 72.64 kg

DRUGS (1)
  1. STELARA [Suspect]
     Active Substance: USTEKINUMAB
     Indication: CROHN^S DISEASE
     Route: 058
     Dates: start: 201902

REACTIONS (4)
  - Product dose omission [Not Recovered/Not Resolved]
  - Complication associated with device [Unknown]
  - Syringe issue [Unknown]
  - Product storage error [Unknown]

NARRATIVE: CASE EVENT DATE: 201910
